FAERS Safety Report 4989991-8 (Version None)
Quarter: 2006Q2

REPORT INFORMATION
  Report Type: 
  Country: None (occurrence: None)
  Receive Date: 20060428
  Receipt Date: 20060420
  Transmission Date: 20061013
  Serious: Yes (Death, Life-Threatening)
  Sender: FDA-Public Use
  Company Number: 200611423GDS

PATIENT
  Age: 50 Year
  Sex: Female
  Weight: 38 kg

DRUGS (40)
  1. APROTININ [Suspect]
     Indication: PREOPERATIVE CARE
     Dosage: 1 ML TOTAL DAILY INTRAVENOUS ; 199 ML TOTAL DAILY INTRAVENOUS ; 253 ML TOTAL DAILY INTRAVENOUS
     Route: 042
     Dates: start: 20060331
  2. APROTININ [Suspect]
     Indication: PREOPERATIVE CARE
     Dosage: 1 ML TOTAL DAILY INTRAVENOUS ; 199 ML TOTAL DAILY INTRAVENOUS ; 253 ML TOTAL DAILY INTRAVENOUS
     Route: 042
     Dates: start: 20060331
  3. APROTININ [Suspect]
     Indication: PREOPERATIVE CARE
     Dosage: 1 ML TOTAL DAILY INTRAVENOUS ; 199 ML TOTAL DAILY INTRAVENOUS ; 253 ML TOTAL DAILY INTRAVENOUS
     Route: 042
     Dates: start: 20060331
  4. TRANSTEC [Concomitant]
  5. PANTOZOL [Concomitant]
  6. DOLZAM [Concomitant]
  7. PERDOLAN [Concomitant]
  8. EMCONCOR [Concomitant]
  9. ULTIVA [Concomitant]
  10. NIMBEX [Concomitant]
  11. DIPRIVAN [Concomitant]
  12. DESFLURANE [Concomitant]
  13. CEFAZOLIN [Concomitant]
  14. CATAPRES [Concomitant]
  15. PERFUSALGAN [Concomitant]
  16. LASIX [Concomitant]
  17. TILCOTIL [Concomitant]
  18. MORPHINE [Concomitant]
  19. SELOKEN [Concomitant]
  20. TRADONAL [Concomitant]
  21. NAROPIN [Concomitant]
  22. MORPHINE [Concomitant]
  23. HUMULINE REGULAR [Concomitant]
  24. LOSEC [Concomitant]
  25. DIPIDOLOR [Concomitant]
  26. CLEXANE [Concomitant]
  27. CEFACIDAL [Concomitant]
  28. CEDOCARD [Concomitant]
  29. LITICAN [Concomitant]
  30. NEXIUM [Concomitant]
  31. TAZOCIN [Concomitant]
  32. DOBUTREX [Concomitant]
  33. DIFLUCAN [Concomitant]
  34. XIGRIS [Concomitant]
  35. HARTMANN [Concomitant]
  36. GLUCOSE [Concomitant]
  37. PLASMA-LYTE A [Concomitant]
  38. GEOPLASMA [Concomitant]
  39. MAGNESIUMCHLORIDE [Concomitant]
  40. SELOKEN [Concomitant]

REACTIONS (23)
  - ACUTE RESPIRATORY DISTRESS SYNDROME [None]
  - ARTERIOSCLEROSIS CORONARY ARTERY [None]
  - BLOOD GLUCOSE FLUCTUATION [None]
  - DIALYSIS [None]
  - HEART RATE INCREASED [None]
  - HEPATIC CONGESTION [None]
  - HYPOTENSION [None]
  - LUNG INFILTRATION [None]
  - MYOCARDITIS [None]
  - PNEUMONIA [None]
  - PNEUMONITIS [None]
  - POLYURIA [None]
  - POST PROCEDURAL COMPLICATION [None]
  - PSEUDOMONAS INFECTION [None]
  - PYREXIA [None]
  - RENAL FAILURE [None]
  - RESPIRATORY ACIDOSIS [None]
  - RESPIRATORY FAILURE [None]
  - SPLENIC INFARCTION [None]
  - SPUTUM CULTURE POSITIVE [None]
  - TACHYPNOEA [None]
  - THROMBOSIS [None]
  - VASCULITIS [None]
